FAERS Safety Report 8058315 (Version 3)
Quarter: 2013Q1

REPORT INFORMATION
  Report Type: Spontaneous
  Country: FR (occurrence: FR)
  Receive Date: 20110728
  Receipt Date: 20130322
  Transmission Date: 20140127
  Serious: Yes (Death, Hospitalization, Other)
  Sender: FDA-Public Use
  Company Number: FR-BRISTOL-MYERS SQUIBB COMPANY-15918006

PATIENT
  Age: 75 Year
  Sex: Male

DRUGS (5)
  1. HYDREA [Suspect]
     Dosage: 21-JUN-2011 TO 24-JUN-2011 AND 27-JUN-2011 TO 30-JUN-2011.
     Route: 048
     Dates: start: 20110621
  2. DOXORUBICIN [Suspect]
     Route: 042
     Dates: start: 20110623
  3. METOCLOPRAMIDE [Suspect]
     Route: 042
     Dates: start: 20110621, end: 20110628
  4. MIDAZOLAM [Suspect]
     Route: 042
     Dates: start: 20110621, end: 20110701
  5. SUFENTANIL [Suspect]
     Route: 042
     Dates: start: 20110621, end: 20110701

REACTIONS (5)
  - Enterococcal sepsis [Unknown]
  - Neutropenia [Unknown]
  - Thrombocytopenia [Unknown]
  - Hyperbilirubinaemia [Recovering/Resolving]
  - Liver disorder [Unknown]
